FAERS Safety Report 24383854 (Version 7)
Quarter: 2025Q1

REPORT INFORMATION
  Report Type: Spontaneous
  Country: US (occurrence: US)
  Receive Date: 20241001
  Receipt Date: 20250101
  Transmission Date: 20250409
  Serious: No
  Sender: SANOFI AVENTIS
  Company Number: US-SA-2024SA274054

PATIENT
  Age: 60 Year
  Sex: Female

DRUGS (2)
  1. DUPIXENT [Suspect]
     Active Substance: DUPILUMAB
     Indication: Asthma
     Dosage: 300 MG, QOW
     Route: 058
  2. DUPIXENT [Suspect]
     Active Substance: DUPILUMAB
     Dosage: 300 MG, QOW
     Route: 058

REACTIONS (13)
  - Cough [Unknown]
  - Influenza like illness [Unknown]
  - Pain [Unknown]
  - Dyspnoea [Unknown]
  - Swelling [Unknown]
  - Back pain [Unknown]
  - Oedema [Unknown]
  - Pain in extremity [Unknown]
  - Nasopharyngitis [Unknown]
  - Headache [Unknown]
  - Injection site pain [Unknown]
  - Oxygen saturation decreased [Unknown]
  - Malaise [Unknown]
